FAERS Safety Report 4476083-X (Version None)
Quarter: 2004Q4

REPORT INFORMATION
  Report Type: 
  Country: None (occurrence: None)
  Receive Date: 20041012
  Receipt Date: 20040925
  Transmission Date: 20050328
  Serious: Yes (Hospitalization)
  Sender: FDA-Public Use
  Company Number: K200401473

PATIENT
  Age: 56 Year
  Sex: Male
  Weight: 88 kg

DRUGS (6)
  1. SKELAXIN [Suspect]
     Indication: BACK INJURY
     Dosage: 800 MG, QHS, ORAL
     Route: 048
     Dates: start: 20040917, end: 20040917
  2. SKELAXIN [Suspect]
     Indication: BACK INJURY
     Dosage: 800 MG, QHS, ORAL
     Route: 048
     Dates: start: 20040920
  3. TRAMADOL (TRAMADOL) 50MG [Suspect]
     Indication: BACK PAIN
     Dosage: 50 MG, QD, ORAL
     Route: 048
     Dates: start: 20040917, end: 20040917
  4. TRAMADOL (TRAMADOL) 50MG [Suspect]
     Indication: BACK PAIN
     Dosage: 50 MG, QD, ORAL
     Route: 048
     Dates: start: 20040920
  5. ^ NOW DETOX SUPPORT ^ [Concomitant]
  6. VITAMIN C (ASCORBIC ACID) [Concomitant]

REACTIONS (6)
  - CHEST PAIN [None]
  - DYSPNOEA [None]
  - FEELING ABNORMAL [None]
  - HEART RATE IRREGULAR [None]
  - PALPITATIONS [None]
  - SYNCOPE [None]
